FAERS Safety Report 11240593 (Version 1)
Quarter: 2015Q3

REPORT INFORMATION
  Report Type: Spontaneous
  Country: BR (occurrence: BR)
  Receive Date: 20150706
  Receipt Date: 20150706
  Transmission Date: 20151125
  Serious: Yes (Other)
  Sender: FDA-Public Use
  Company Number: BR-PFIZER INC-2015219334

PATIENT
  Age: 76 Year
  Sex: Female
  Weight: 102 kg

DRUGS (1)
  1. CELEBRA [Suspect]
     Active Substance: CELECOXIB
     Dosage: STRENGTH 200MG

REACTIONS (2)
  - Accident [Unknown]
  - Joint dislocation [Unknown]
